FAERS Safety Report 7009648-1 (Version None)
Quarter: 2010Q3

REPORT INFORMATION
  Report Type: 
  Country: None (occurrence: None)
  Receive Date: 20100923
  Receipt Date: 20100914
  Transmission Date: 20110219
  Serious: No
  Sender: FDA-Public Use
  Company Number: US-B.I. PHARMACEUTICALS,INC./RIDGEFIELD-2010-BP-10518BP

PATIENT
  Sex: Female

DRUGS (1)
  1. FLOMAX [Suspect]

REACTIONS (1)
  - JAW DISORDER [None]
